FAERS Safety Report 8665029 (Version 3)
Quarter: 2013Q1

REPORT INFORMATION
  Report Type: Spontaneous
  Country: DE (occurrence: DE)
  Receive Date: 20120716
  Receipt Date: 20130219
  Transmission Date: 20140127
  Serious: Yes (Other)
  Sender: FDA-Public Use
  Company Number: DE-AMGEN-DEUSP2012042772

PATIENT
  Age: 70 Year
  Sex: Female
  Weight: 110 kg

DRUGS (6)
  1. NPLATE [Suspect]
     Indication: IDIOPATHIC THROMBOCYTOPENIC PURPURA
     Dosage: 8 MUG/KG, QWK
     Route: 058
     Dates: start: 20090615
  2. PREDNISONE [Concomitant]
     Indication: IDIOPATHIC THROMBOCYTOPENIC PURPURA
     Dosage: 20 MG, QD
     Route: 048
     Dates: start: 2009
  3. INSULIN [Concomitant]
  4. DELIX                              /00885601/ [Concomitant]
     Indication: HYPERTENSION
     Dosage: 2.5 UNK, UNK
  5. ALENDRONATE [Concomitant]
     Indication: OSTEOPOROSIS
     Dosage: 70 MG, UNK
  6. LYRICA [Concomitant]
     Indication: DYSAESTHESIA

REACTIONS (3)
  - Myelofibrosis [Not Recovered/Not Resolved]
  - Leukocytosis [Not Recovered/Not Resolved]
  - Thrombocytopenia [Unknown]
